FAERS Safety Report 6086283-3 (Version None)
Quarter: 2009Q1

REPORT INFORMATION
  Report Type: 
  Country: None (occurrence: None)
  Receive Date: 20090220
  Receipt Date: 20090216
  Transmission Date: 20090719
  Serious: No
  Sender: FDA-Public Use
  Company Number: US-B.I. PHARMACEUTICALS,INC./RIDGEFIELD-2009-BP-01969BP

PATIENT
  Sex: Male

DRUGS (7)
  1. MOBIC [Suspect]
     Dosage: 7.5MG
     Route: 048
     Dates: start: 20090213, end: 20090215
  2. LISINOPRIL [Concomitant]
     Indication: HYPERTENSION
     Route: 048
     Dates: start: 20081201
  3. ZOCOR [Concomitant]
     Indication: BLOOD CHOLESTEROL INCREASED
     Route: 048
  4. ARICEPT [Concomitant]
     Route: 048
  5. PEPCID [Concomitant]
     Indication: GASTROOESOPHAGEAL REFLUX DISEASE
     Route: 048
  6. ZYRTEC [Concomitant]
     Indication: HYPERSENSITIVITY
     Route: 048
  7. FLONASE [Concomitant]
     Indication: HYPERSENSITIVITY

REACTIONS (2)
  - BLADDER SPASM [None]
  - POLLAKIURIA [None]
